FAERS Safety Report 11422017 (Version 2)
Quarter: 2015Q4

REPORT INFORMATION
  Report Type: Spontaneous
  Country: JP (occurrence: None)
  Receive Date: 20150825
  Receipt Date: 20151022
  Transmission Date: 20160304
  Serious: Yes (Life-Threatening)
  Sender: FDA-Public Use
  Company Number: JP-ALSI-201500153

PATIENT
  Age: 71 Year
  Sex: Male

DRUGS (6)
  1. PANVITAN (VITAMIN A; VITAMIN D) [Concomitant]
  2. BENET (RISEDRONATE SODIUM) [Concomitant]
  3. CINAL (ASCORBIC ACID; CALCIUM PANTOTHENATE) [Concomitant]
  4. REBAMIPIDE [Concomitant]
     Active Substance: REBAMIPIDE
  5. CLINORIL (SULINDAC) [Concomitant]
  6. OXYGEN. [Suspect]
     Active Substance: OXYGEN
     Indication: SLEEP APNOEA SYNDROME
     Dosage: 2L ONCE A MINUTE RESPIRATORY
     Route: 055
     Dates: start: 20150127, end: 20150128

REACTIONS (5)
  - Altered state of consciousness [None]
  - Glossoptosis [None]
  - Somnolence [None]
  - Joint stiffness [None]
  - Hypercapnia [None]

NARRATIVE: CASE EVENT DATE: 20150128
